FAERS Safety Report 10069195 (Version 2)
Quarter: 2014Q2

REPORT INFORMATION
  Report Type: Spontaneous
  Country: US (occurrence: US)
  Receive Date: 20140409
  Receipt Date: 20140409
  Transmission Date: 20141212
  Serious: No
  Sender: FDA-Public Use
  Company Number: US-ASTELLAS-2013US004316

PATIENT
  Sex: Female

DRUGS (12)
  1. PROTOPIC [Suspect]
     Indication: LICHEN PLANUS
     Dosage: 0.03 %, SEVERAL TIMES A DAY
     Route: 061
     Dates: start: 2012
  2. PROTOPIC [Suspect]
     Indication: LIP ULCERATION
  3. DEXAMETHASONE [Concomitant]
     Indication: LICHEN PLANUS
     Dosage: UNK
     Route: 065
  4. DEXAMETHASONE [Concomitant]
     Indication: LIP ULCERATION
  5. MOUTH WASH [Concomitant]
     Indication: LICHEN PLANUS
     Dosage: UNK
     Route: 065
  6. MOUTH WASH [Concomitant]
     Indication: LIP ULCERATION
  7. DENTAL PASTE [Concomitant]
     Indication: LICHEN PLANUS
     Dosage: UNK
     Route: 065
  8. DENTAL PASTE [Concomitant]
     Indication: LIP ULCERATION
  9. CRYPTOHEPTADINE [Concomitant]
     Indication: LIP ULCERATION
     Dosage: UNK
     Route: 065
  10. CRYPTOHEPTADINE [Concomitant]
     Indication: LICHEN PLANUS
  11. APO-PREDNISONE [Concomitant]
     Indication: LIP ULCERATION
     Dosage: UNK
     Route: 065
  12. APO-PREDNISONE [Concomitant]
     Indication: LICHEN PLANUS

REACTIONS (2)
  - Off label use [Unknown]
  - Lip swelling [Not Recovered/Not Resolved]
